FAERS Safety Report 23550341 (Version 1)
Quarter: 2024Q1

REPORT INFORMATION
  Report Type: Spontaneous
  Country: FR (occurrence: FR)
  Receive Date: 20240221
  Receipt Date: 20240221
  Transmission Date: 20240409
  Serious: Yes (Hospitalization)
  Sender: FDA-Public Use
  Company Number: None

PATIENT
  Age: 55 Year
  Sex: Male

DRUGS (13)
  1. VALPROATE SODIUM [Suspect]
     Active Substance: VALPROATE SODIUM
     Indication: Product used for unknown indication
     Route: 065
     Dates: start: 2016
  2. PHENERGAN [Concomitant]
     Active Substance: PROMETHAZINE HYDROCHLORIDE
     Indication: Product used for unknown indication
     Route: 065
     Dates: start: 2021
  3. DUPHALAC [Concomitant]
     Active Substance: LACTULOSE
     Indication: Constipation
     Route: 065
  4. DECAPEPTYL [Concomitant]
     Indication: Product used for unknown indication
     Route: 065
     Dates: start: 2018
  5. MELATONIN [Concomitant]
     Active Substance: MELATONIN
     Indication: Insomnia
     Route: 048
     Dates: start: 202211
  6. DESMOPRESSIN [Concomitant]
     Active Substance: DESMOPRESSIN
     Indication: Diabetes insipidus
     Route: 048
     Dates: start: 202307
  7. CYPROTERONE ACETATE [Concomitant]
     Active Substance: CYPROTERONE ACETATE
     Indication: Product used for unknown indication
     Route: 048
     Dates: start: 2014
  8. GLYCOPYRRONIUM\INDACATEROL [Concomitant]
     Active Substance: GLYCOPYRRONIUM\INDACATEROL
     Indication: Chronic obstructive pulmonary disease
     Dosage: ULTIBRO BREEZHALER 85 MICROGRAMS/43 MICROGRAMS, POWDER FOR INHALATION IN CAPSULE
     Route: 065
     Dates: start: 201907
  9. PIPOTIAZINE [Suspect]
     Active Substance: PIPOTIAZINE
     Indication: Schizophrenia
     Route: 065
     Dates: start: 201809
  10. TROPATEPINE HYDROCHLORIDE [Concomitant]
     Active Substance: TROPATEPINE HYDROCHLORIDE
     Indication: Dyskinesia
     Route: 065
     Dates: start: 202204
  11. HALDOL [Suspect]
     Active Substance: HALOPERIDOL
     Indication: Schizophrenia
     Route: 048
     Dates: start: 202301
  12. CALCIDOSE [Concomitant]
     Indication: Osteoporosis
     Route: 048
     Dates: start: 2014
  13. ALENDRONIC ACID [Concomitant]
     Active Substance: ALENDRONIC ACID
     Indication: Osteoporosis
     Route: 048
     Dates: start: 202302

REACTIONS (2)
  - Hypothermia [Recovering/Resolving]
  - Hypoglycaemia [Recovered/Resolved]

NARRATIVE: CASE EVENT DATE: 20231211
